FAERS Safety Report 19736517 (Version 7)
Quarter: 2022Q1

REPORT INFORMATION
  Report Type: Report from Study
  Country: US (occurrence: US)
  Receive Date: 20210823
  Receipt Date: 20220216
  Transmission Date: 20220423
  Serious: Yes (Hospitalization, Other)
  Sender: FDA-Public Use
  Company Number: NVSC2021US189806

PATIENT
  Age: 66 Year
  Sex: Male

DRUGS (2)
  1. ENTRESTO [Suspect]
     Active Substance: SACUBITRIL\VALSARTAN
     Indication: Cardiac failure
     Dosage: UNK UNK, BID
     Route: 048
     Dates: start: 20210617
  2. ENTRESTO [Suspect]
     Active Substance: SACUBITRIL\VALSARTAN
     Indication: Cardiac failure
     Dosage: UNK
     Route: 065
     Dates: start: 20210824

REACTIONS (6)
  - Hypotension [Recovered/Resolved]
  - Neoplasm malignant [Unknown]
  - Dehydration [Recovered/Resolved]
  - Weight fluctuation [Unknown]
  - Malaise [Unknown]
  - Product dose omission issue [Unknown]

NARRATIVE: CASE EVENT DATE: 20210801
